FAERS Safety Report 10058008 (Version 1)
Quarter: 2014Q2

REPORT INFORMATION
  Report Type: Spontaneous
  Country: GB (occurrence: GB)
  Receive Date: 20140404
  Receipt Date: 20140404
  Transmission Date: 20141212
  Serious: Yes (Other)
  Sender: FDA-Public Use
  Company Number: GB-ASTRAZENECA-2014SE21881

PATIENT
  Age: 66 Year
  Sex: Female

DRUGS (3)
  1. FELODIPINE [Suspect]
     Indication: BLOOD PRESSURE ABNORMAL
     Route: 048
     Dates: start: 201402
  2. TAMOXIFEN [Concomitant]
     Route: 065
  3. FELODIPINE [Suspect]
     Indication: BLOOD PRESSURE ABNORMAL
     Route: 048
     Dates: start: 201209, end: 201402

REACTIONS (6)
  - Ocular hyperaemia [Unknown]
  - Renal impairment [Unknown]
  - Joint swelling [Unknown]
  - Rash [Unknown]
  - Product quality issue [Unknown]
  - Pain [Unknown]
